FAERS Safety Report 9288036 (Version 1)
Quarter: 2012Q4

REPORT INFORMATION
  Report Type: Spontaneous
  Country: RU (occurrence: None)
  Receive Date: 20120928
  Receipt Date: 20120928
  Transmission Date: 20130627
  Serious: No
  Sender: FDA-Public Use
  Company Number: 1209RUS004805

PATIENT
  Age: 12 Year
  Sex: Female

DRUGS (1)
  1. CEDAX [Suspect]
     Indication: PNEUMONIA
     Route: 048

REACTIONS (1)
  - Drug ineffective [None]
